FAERS Safety Report 26006618 (Version 1)
Quarter: 2025Q4

REPORT INFORMATION
  Report Type: Spontaneous
  Country: EU (occurrence: EU)
  Receive Date: 20251106
  Receipt Date: 20251106
  Transmission Date: 20260117
  Serious: Yes (Other)
  Sender: SK LIFE SCIENCE
  Company Number: EU-ANGELINIP-2025-039316

PATIENT

DRUGS (1)
  1. XCOPRI [Suspect]
     Active Substance: CENOBAMATE
     Indication: Partial seizures
     Dosage: TITRATION UP TO 100 MG, FOLLOWING THE SMPC. AFTER A PAUSE IN TITRATION, IT WAS INCREASED TO 150MG (I
     Route: 048

REACTIONS (1)
  - Psychotic disorder [Recovered/Resolved]
